FAERS Safety Report 8336683-3 (Version None)
Quarter: 2012Q2

REPORT INFORMATION
  Report Type: 
  Country: None (occurrence: None)
  Receive Date: 20120504
  Receipt Date: 20100608
  Transmission Date: 20120825
  Serious: No
  Sender: FDA-Public Use
  Company Number: US-TEVA-2010003125

PATIENT
  Sex: Male

DRUGS (2)
  1. NUVIGIL [Suspect]
     Indication: DISTURBANCE IN ATTENTION
  2. NUVIGIL [Suspect]
     Indication: MEMORY IMPAIRMENT
     Dosage: 75 MILLIGRAM;
     Route: 048
     Dates: start: 20100525

REACTIONS (1)
  - URINE KETONE BODY ABSENT [None]
